FAERS Safety Report 6753188-1 (Version None)
Quarter: 2010Q2

REPORT INFORMATION
  Report Type: 
  Country: None (occurrence: None)
  Receive Date: 20100603
  Receipt Date: 20100524
  Transmission Date: 20101027
  Serious: Yes (Death)
  Sender: FDA-Public Use
  Company Number: JP-PFIZER INC-2010065889

PATIENT
  Age: 72 Year
  Sex: Male
  Weight: 55.6 kg

DRUGS (2)
  1. SUNITINIB MALATE [Suspect]
     Indication: GASTROINTESTINAL STROMAL TUMOUR
     Dosage: 50 MG, 1X/DAY
     Route: 048
     Dates: start: 20080903
  2. PROCHLORPERAZINE [Concomitant]
     Dosage: UNK
     Route: 048
     Dates: start: 20080908

REACTIONS (1)
  - DEATH [None]
